FAERS Safety Report 5754723-2 (Version None)
Quarter: 2008Q2

REPORT INFORMATION
  Report Type: 
  Country: None (occurrence: None)
  Receive Date: 20080527
  Receipt Date: 20080507
  Transmission Date: 20081010
  Serious: Yes (Hospitalization)
  Sender: FDA-Public Use
  Company Number: 2008AL003884

PATIENT
  Age: 66 Year
  Sex: Male
  Weight: 74.3899 kg

DRUGS (5)
  1. DIGOXIN [Suspect]
     Indication: BRADYCARDIA
     Dosage: 0.125, DAILY PO
     Route: 048
     Dates: start: 20070701
  2. INSULIN [Concomitant]
  3. PREVACOL [Concomitant]
  4. GLYBURIDE [Concomitant]
  5. PACERONE [Concomitant]

REACTIONS (4)
  - CARDIAC ARREST [None]
  - CEREBROVASCULAR ACCIDENT [None]
  - HEART RATE DECREASED [None]
  - HYPOTENSION [None]
